FAERS Safety Report 14717556 (Version 2)
Quarter: 2019Q4

REPORT INFORMATION
  Report Type: Report from Study
  Country: US (occurrence: US)
  Receive Date: 20180404
  Receipt Date: 20191002
  Transmission Date: 20200122
  Serious: No
  Sender: FDA-Public Use
  Company Number: US-SA-2018SA012479

PATIENT
  Age: 15 Year
  Sex: Male

DRUGS (5)
  1. DUPILUMAB [Suspect]
     Active Substance: DUPILUMAB
     Indication: DERMATITIS ATOPIC
     Dosage: 200 MG, QM
     Route: 058
     Dates: start: 2017
  2. DUPILUMAB [Suspect]
     Active Substance: DUPILUMAB
     Dosage: 400 MG, 1X
     Route: 058
     Dates: start: 20190410, end: 20190410
  3. DUPILUMAB [Suspect]
     Active Substance: DUPILUMAB
     Dosage: 300 MG, QOW
     Route: 058
     Dates: start: 20190604
  4. DUPILUMAB [Suspect]
     Active Substance: DUPILUMAB
     Dosage: 200 UNK
     Route: 058
     Dates: start: 20190424
  5. DUPILUMAB [Suspect]
     Active Substance: DUPILUMAB
     Dosage: 200 MG, QOW
     Route: 058

REACTIONS (5)
  - Depression [Unknown]
  - Dermatitis atopic [Unknown]
  - Hypersensitivity [Unknown]
  - Blood immunoglobulin E decreased [Not Recovered/Not Resolved]
  - Insomnia [Unknown]
